FAERS Safety Report 13273015 (Version 1)
Quarter: 2017Q1

REPORT INFORMATION
  Report Type: Spontaneous
  Country: US (occurrence: US)
  Receive Date: 20170227
  Receipt Date: 20170227
  Transmission Date: 20170428
  Serious: Yes (Hospitalization, Other)
  Sender: FDA-Public Use
  Company Number: US-009507513-1702USA009030

PATIENT
  Age: 60 Year
  Sex: Female

DRUGS (1)
  1. NOXAFIL [Suspect]
     Active Substance: POSACONAZOLE
     Indication: WOUND INFECTION
     Dosage: DAILY
     Route: 048
     Dates: start: 201606

REACTIONS (1)
  - Wound infection [Unknown]
